FAERS Safety Report 8781558 (Version 1)
Quarter: 2012Q4

REPORT INFORMATION
  Report Type: 
  Country: US (occurrence: US)
  Receive Date: 20120913
  Receipt Date: 20120913
  Transmission Date: 20130627
  Serious: Yes (Other)
  Sender: FDA-Public Use
  Company Number: US-PFIZER INC-2012224748

PATIENT
  Age: 30 Year
  Sex: Male

DRUGS (1)
  1. ADVIL [Suspect]
     Indication: VIRAL INFECTION
     Dosage: UNK
     Route: 048
     Dates: start: 2012, end: 201205

REACTIONS (2)
  - Cerebral haemorrhage [Recovered/Resolved]
  - Headache [Recovered/Resolved]
